FAERS Safety Report 9157158 (Version 1)
Quarter: 2013Q1

REPORT INFORMATION
  Report Type: Spontaneous
  Country: US (occurrence: None)
  Receive Date: 20130308
  Receipt Date: 20130308
  Transmission Date: 20140127
  Serious: Yes (Life-Threatening, Hospitalization)
  Sender: FDA-Public Use
  Company Number: None

PATIENT
  Age: 72 Year
  Sex: Female
  Weight: 86.18 kg

DRUGS (1)
  1. NITROFURA MONO-GENERIC FOR MACROBID 100MG [Suspect]
     Route: 048
     Dates: start: 20121003, end: 20121005

REACTIONS (2)
  - Cough [None]
  - Drug hypersensitivity [None]
